FAERS Safety Report 21889919 (Version 2)
Quarter: 2023Q1

REPORT INFORMATION
  Report Type: Spontaneous
  Country: BR (occurrence: BR)
  Receive Date: 20230120
  Receipt Date: 20230328
  Transmission Date: 20230418
  Serious: Yes (Other)
  Sender: FDA-Public Use
  Company Number: BR-002147023-NVSC2023BR012451

PATIENT
  Age: 32 Year
  Sex: Male

DRUGS (2)
  1. ADALIMUMAB [Suspect]
     Active Substance: ADALIMUMAB
     Indication: Type 2 lepra reaction
     Dosage: 40 MG, Q2W (BIWEEKLY)
     Route: 058
  2. PREDNISONE [Concomitant]
     Active Substance: PREDNISONE
     Indication: Type 2 lepra reaction
     Dosage: 1 MG/KG, QD
     Route: 065

REACTIONS (2)
  - Sepsis [Unknown]
  - Product use in unapproved indication [Unknown]
